FAERS Safety Report 14403860 (Version 2)
Quarter: 2018Q1

REPORT INFORMATION
  Report Type: Spontaneous
  Country: FR (occurrence: FR)
  Receive Date: 20180117
  Receipt Date: 20180223
  Transmission Date: 20180509
  Serious: Yes (Other)
  Sender: FDA-Public Use
  Company Number: FR-TEVA-812541ROM

PATIENT
  Age: 58 Year
  Sex: Female

DRUGS (3)
  1. XANAX [Concomitant]
     Active Substance: ALPRAZOLAM
     Route: 065
  2. COPAXONE [Suspect]
     Active Substance: GLATIRAMER ACETATE
     Indication: MULTIPLE SCLEROSIS
     Route: 058
     Dates: start: 20170925
  3. NORSET [Concomitant]
     Active Substance: MIRTAZAPINE
     Route: 065

REACTIONS (22)
  - Dysuria [Recovering/Resolving]
  - Fatigue [Unknown]
  - Oral herpes [Unknown]
  - Headache [Not Recovered/Not Resolved]
  - Nausea [Not Recovered/Not Resolved]
  - Therapy change [Unknown]
  - Abdominal pain [Unknown]
  - Feeling hot [Not Recovered/Not Resolved]
  - Constipation [Not Recovered/Not Resolved]
  - Blood alkaline phosphatase increased [Not Recovered/Not Resolved]
  - Urinary tract inflammation [Unknown]
  - Arthralgia [Not Recovered/Not Resolved]
  - Liver function test abnormal [Unknown]
  - Wrong technique in device usage process [Unknown]
  - Malaise [Unknown]
  - Neck pain [Unknown]
  - Multiple sclerosis relapse [Unknown]
  - Injection site pain [Not Recovered/Not Resolved]
  - Noninfective gingivitis [Recovered/Resolved]
  - Pain [Not Recovered/Not Resolved]
  - Underdose [Unknown]
  - Tremor [Unknown]

NARRATIVE: CASE EVENT DATE: 2017
